FAERS Safety Report 9374749 (Version 1)
Quarter: 2013Q2

REPORT INFORMATION
  Report Type: Spontaneous
  Country: FR (occurrence: FR)
  Receive Date: 20130628
  Receipt Date: 20130628
  Transmission Date: 20140414
  Serious: Yes (Hospitalization)
  Sender: FDA-Public Use
  Company Number: FR-JNJFOC-20130612101

PATIENT
  Age: 78 Year
  Sex: Female

DRUGS (9)
  1. MOTILIUM [Suspect]
     Indication: NAUSEA
     Route: 048
     Dates: end: 201209
  2. TRAMADOL [Suspect]
     Indication: PAIN
     Route: 048
     Dates: end: 2012
  3. TRAMADOL [Suspect]
     Indication: PAIN
     Route: 048
     Dates: start: 2012
  4. CERIS [Suspect]
     Indication: NEUROGENIC BLADDER
     Route: 048
     Dates: end: 201209
  5. LEVOTHYROX [Concomitant]
     Route: 065
  6. CRESTOR [Concomitant]
     Route: 065
  7. NOCTAMIDE [Concomitant]
     Route: 065
  8. SEROPLEX [Concomitant]
     Route: 065
  9. DOLIPRANE [Concomitant]
     Route: 065

REACTIONS (3)
  - Altered state of consciousness [Recovered/Resolved]
  - Dysarthria [Recovered/Resolved]
  - Somnolence [Recovered/Resolved]
